FAERS Safety Report 8780875 (Version 1)
Quarter: 2012Q4

REPORT INFORMATION
  Report Type: 
  Country: US (occurrence: US)
  Receive Date: 20120913
  Receipt Date: 20120913
  Transmission Date: 20130627
  Serious: No
  Sender: FDA-Public Use
  Company Number: US-VERTEX PHARMACEUTICAL INC.-AE-2012-008199

PATIENT

DRUGS (10)
  1. INCIVEK [Suspect]
     Indication: HEPATITIS C
     Route: 048
     Dates: start: 20120521
  2. RIBAVIRIN [Concomitant]
     Indication: HEPATITIS C
     Route: 048
     Dates: start: 20120521
  3. PEGASYS [Concomitant]
     Indication: HEPATITIS C
     Route: 058
  4. CARAFATE [Concomitant]
     Indication: GASTRIC ULCER
     Route: 048
  5. PRILOSEC [Concomitant]
     Indication: GASTROOESOPHAGEAL REFLUX DISEASE
     Route: 048
  6. MULTIVITAMIN [Concomitant]
     Route: 048
  7. FOLIC ACID [Concomitant]
     Route: 048
  8. VITAMIN B12 [Concomitant]
     Route: 060
  9. CALCIUM [Concomitant]
     Route: 048
  10. VITAMIN D [Concomitant]
     Route: 048

REACTIONS (3)
  - Diarrhoea [Not Recovered/Not Resolved]
  - Anorectal discomfort [Not Recovered/Not Resolved]
  - Anal pruritus [Not Recovered/Not Resolved]
